FAERS Safety Report 11266663 (Version 1)
Quarter: 2015Q3

REPORT INFORMATION
  Report Type: Report from Study
  Country: US (occurrence: US)
  Receive Date: 20150713
  Receipt Date: 20150713
  Transmission Date: 20151125
  Serious: Yes (Hospitalization, Other)
  Sender: FDA-Public Use
  Company Number: US-CELGENE-USA-2015066569

PATIENT
  Age: 72 Year
  Sex: Male
  Weight: 80.9 kg

DRUGS (4)
  1. AZACITIDINE INJECTABLE [Suspect]
     Active Substance: AZACITIDINE
     Route: 041
     Dates: start: 20150604, end: 20150610
  2. MIDOSTAURIN [Suspect]
     Active Substance: MIDOSTAURIN
     Indication: ACUTE MYELOID LEUKAEMIA
     Route: 048
     Dates: start: 20150429
  3. MIDOSTAURIN [Suspect]
     Active Substance: MIDOSTAURIN
     Route: 048
     Dates: start: 20150611, end: 20150624
  4. AZACITIDINE INJECTABLE [Suspect]
     Active Substance: AZACITIDINE
     Indication: ACUTE MYELOID LEUKAEMIA
     Route: 041
     Dates: start: 20150409

REACTIONS (2)
  - Heart rate increased [Unknown]
  - Bacteraemia [Unknown]

NARRATIVE: CASE EVENT DATE: 20150621
